FAERS Safety Report 8814869 (Version 3)
Quarter: 2013Q4

REPORT INFORMATION
  Report Type: Report from Study
  Country: CA (occurrence: CA)
  Receive Date: 20120928
  Receipt Date: 20131007
  Transmission Date: 20140711
  Serious: Yes (Hospitalization, Other)
  Sender: FDA-Public Use
  Company Number: CA-ROCHE-1138358

PATIENT
  Age: 75 Year
  Sex: Female
  Weight: 93.6 kg

DRUGS (8)
  1. ACTEMRA [Suspect]
     Indication: RHEUMATOID ARTHRITIS
     Route: 042
     Dates: start: 20101117
  2. ACTEMRA [Suspect]
     Route: 042
     Dates: start: 20110926, end: 20130917
  3. METHOTREXATE [Concomitant]
     Route: 048
  4. SYNTHROID [Concomitant]
  5. CRESTOR [Concomitant]
  6. OMEGA 3 FATTY ACIDS [Concomitant]
  7. GLUCOSAMINE/CHONDROITIN [Concomitant]
  8. FOLIC ACID [Concomitant]

REACTIONS (2)
  - Limb reconstructive surgery [Unknown]
  - Pneumonia [Unknown]
